FAERS Safety Report 5854363-0 (Version None)
Quarter: 2008Q3

REPORT INFORMATION
  Report Type: 
  Country: None (occurrence: None)
  Receive Date: 20080822
  Receipt Date: 20080806
  Transmission Date: 20090109
  Serious: Yes (Disabling)
  Sender: FDA-Public Use
  Company Number: BE-BOEHRINGER INGELHEIM GMBH, GERMANY-2008-BL-00090BL

PATIENT
  Sex: Female
  Weight: 84 kg

DRUGS (3)
  1. SIFROL [Suspect]
     Indication: RESTLESS LEGS SYNDROME
     Route: 048
     Dates: start: 20071130, end: 20071201
  2. BREXINE DRYFIZ [Concomitant]
     Indication: BACK PAIN
     Route: 048
  3. REDUCTIL [Concomitant]
     Indication: WEIGHT INCREASED
     Route: 048

REACTIONS (2)
  - BULIMIA NERVOSA [None]
  - SOMNOLENCE [None]
